FAERS Safety Report 5068226-4 (Version None)
Quarter: 2006Q3

REPORT INFORMATION
  Report Type: 
  Country: None (occurrence: None)
  Receive Date: 20060802
  Receipt Date: 20050609
  Transmission Date: 20061208
  Serious: No
  Sender: FDA-Public Use
  Company Number: US-BRISTOL-MYERS SQUIBB COMPANY-12998969

PATIENT
  Age: 68 Year
  Sex: Male
  Weight: 86 kg

DRUGS (6)
  1. COUMADIN [Suspect]
     Indication: HEART RATE IRREGULAR
     Dates: start: 20050201
  2. TOPROL-XL [Concomitant]
  3. METFORMIN HYDROCHLORIDE [Concomitant]
  4. ZESTRIL [Concomitant]
  5. TYLENOL (CAPLET) [Concomitant]
  6. ASPIRIN BUFFERED [Concomitant]

REACTIONS (1)
  - EPISTAXIS [None]
